FAERS Safety Report 17814908 (Version 1)
Quarter: 2020Q2

REPORT INFORMATION
  Report Type: Report from Study
  Country: None (occurrence: DE)
  Receive Date: 20200522
  Receipt Date: 20200522
  Transmission Date: 20200714
  Serious: Yes (Hospitalization)
  Sender: FDA-Public Use
  Company Number: DE-ABBVIE-20K-062-3410827-00

PATIENT
  Age: 50 Year
  Sex: Male

DRUGS (6)
  1. HUMIRA [Suspect]
     Active Substance: ADALIMUMAB
     Indication: AXIAL SPONDYLOARTHRITIS
     Route: 058
     Dates: start: 20170905, end: 20171213
  2. SIMPONI [Suspect]
     Active Substance: GOLIMUMAB
     Indication: PRODUCT USED FOR UNKNOWN INDICATION
     Route: 065
     Dates: start: 20171220
  3. ACEMETACIN [Concomitant]
     Active Substance: ACEMETACIN
     Indication: PRODUCT USED FOR UNKNOWN INDICATION
     Dates: start: 20170828
  4. CELECOXIB. [Concomitant]
     Active Substance: CELECOXIB
     Dates: start: 20190122
  5. CELECOXIB. [Concomitant]
     Active Substance: CELECOXIB
     Indication: PRODUCT USED FOR UNKNOWN INDICATION
     Dates: start: 20171124, end: 20180101
  6. CELECOXIB. [Concomitant]
     Active Substance: CELECOXIB
     Dates: start: 20180716, end: 20181115

REACTIONS (2)
  - Mucosal disorder [Unknown]
  - Adenoma benign [Unknown]

NARRATIVE: CASE EVENT DATE: 20190527
